FAERS Safety Report 8274300-1 (Version None)
Quarter: 2012Q2

REPORT INFORMATION
  Report Type: 
  Country: None (occurrence: None)
  Receive Date: 20120411
  Receipt Date: 20120403
  Transmission Date: 20120825
  Serious: Yes (Life-Threatening, Hospitalization)
  Sender: FDA-Public Use
  Company Number: NL-TEVA-332132ISR

PATIENT
  Sex: Female
  Weight: 67 kg

DRUGS (13)
  1. SELOKEEN [Concomitant]
     Dosage: 200 MILLIGRAM;
     Dates: start: 20051201
  2. FOLIUMZUUR [Concomitant]
     Dosage: 5 MILLIGRAM;
     Dates: start: 20080108
  3. PREDNISOLONE [Concomitant]
     Dosage: 5 MILLIGRAM;
     Dates: start: 20090408
  4. VALSARTAN  AND HYDROCHLOROTHIAZIDE [Concomitant]
     Dosage: 1500 MILLIGRAM;
     Dates: start: 20101202
  5. LIPITOR [Concomitant]
     Dosage: 20 MILLIGRAM;
     Dates: start: 20051201
  6. TOLBUTAMIDE [Concomitant]
     Dosage: 500 MILLIGRAM;
     Dates: start: 20110516
  7. METHOTREXATE [Suspect]
     Indication: RHEUMATOID ARTHRITIS
     Dosage: 200 MILLIGRAM;
     Dates: start: 20081018, end: 20120312
  8. ASCAL CARDIO [Concomitant]
     Dosage: 100 MILLIGRAM;
     Dates: start: 20051201
  9. PANTOPRAZOLE [Concomitant]
     Dosage: 40 MILLIGRAM;
     Dates: start: 20090408
  10. METFORMIN HCL [Concomitant]
     Dosage: 1500 MILLIGRAM;
     Dates: start: 20101202
  11. CALCICHEW KAUW [Concomitant]
     Dosage: 500 MILLIGRAM;
     Dates: start: 20060424
  12. AMLODIPINE [Concomitant]
     Dosage: 5 MILLIGRAM;
     Dates: start: 20091221
  13. TRAMADOL HCL ACTIVIS [Concomitant]
     Dosage: 50 MILLIGRAM;
     Dates: start: 20071016

REACTIONS (3)
  - PANCYTOPENIA [None]
  - MYELODYSPLASTIC SYNDROME [None]
  - FUNGAL INFECTION [None]
